FAERS Safety Report 10435056 (Version 1)
Quarter: 2014Q3

REPORT INFORMATION
  Report Type: Spontaneous
  Country: US (occurrence: None)
  Receive Date: 20140724
  Receipt Date: 20140724
  Transmission Date: 20150326
  Serious: Yes (Other)
  Sender: FDA-Public Use
  Company Number: IPC201404-000190

PATIENT
  Age: 86 Year
  Sex: Male

DRUGS (18)
  1. AMBIEN(ZOLPIDEM TARTRATE)(8OLPIDEM TARTRATE) [Concomitant]
  2. VICODIN(HYDROCODONE BITARTRATE) (HYDROCODONE BITARTRATE) [Concomitant]
  3. AMIODARONE (AMIODARONE) (AMIODARONE) [Concomitant]
  4. GABAPENTIN(GABAPENTIN)(GABAPENTIN) [Concomitant]
  5. METOPROLOL TARTRATE (METOPROLOL TARTRATE) (METOPROLOL TARTRATE) [Suspect]
     Active Substance: METOPROLOL TARTRATE
  6. VITAMIN B6(VITAMIN B6)(VITAMIN B6) [Concomitant]
  7. VITAMIN B12 (VITAMIN B12) (VITAMIN B12) [Concomitant]
  8. ALLOPURINOL(ALLOPURINOL)( ALLOPURINOL) [Concomitant]
  9. FOLIC ACID(FOLIC ACID) (FOLIC ACID) [Concomitant]
  10. OMEPRAZOLE (OMEPRAZOLE)(OMEPRAZOLE) [Concomitant]
  11. FINASTERIDE (FINASTERIDE) (FINASTERIDE) [Concomitant]
  12. CRESTOR(ROSUVESTATIN CALCIUM)(ROSUVASTATIN CALCIUM) [Concomitant]
  13. VITAMIN D(VITAMIN D)(VITAMIN D) [Concomitant]
  14. SYNTHROID(THYROXINE)(THYROXINE) [Concomitant]
  15. LEVETIRACETAM(LEVETIRACETAM) (LEVETIRACETAM) [Concomitant]
  16. FUROSEMIDE(FUROSEMIDE)(FUROSEMIDE) [Concomitant]
  17. ENALAPRIL(ENALAPRIL)(ENALAPRII) [Concomitant]
  18. WARFARIN (WARFARIN) (WARFARIN) [Concomitant]
     Active Substance: WARFARIN

REACTIONS (9)
  - Insomnia [None]
  - Dyspnoea exertional [None]
  - Somnolence [None]
  - Peripheral swelling [None]
  - Increased tendency to bruise [None]
  - Joint swelling [None]
  - Nightmare [None]
  - Depression [None]
  - Fatigue [None]
